FAERS Safety Report 19332439 (Version 4)
Quarter: 2021Q3

REPORT INFORMATION
  Report Type: Report from Study
  Country: US (occurrence: US)
  Receive Date: 20210529
  Receipt Date: 20210729
  Transmission Date: 20211014
  Serious: No
  Sender: FDA-Public Use
  Company Number: NVSC2021US115830

PATIENT
  Age: 40 Year
  Sex: Female

DRUGS (2)
  1. COSENTYX [Suspect]
     Active Substance: SECUKINUMAB
     Indication: PSORIATIC ARTHROPATHY
     Dosage: 300 MG, QW
     Route: 058
     Dates: start: 20210421, end: 20210506
  2. COSENTYX [Suspect]
     Active Substance: SECUKINUMAB
     Indication: PSORIASIS
     Dosage: 300 MG, QW
     Route: 058

REACTIONS (5)
  - Product dose omission issue [Unknown]
  - Scratch [Unknown]
  - Candida infection [Recovered/Resolved]
  - Dry throat [Unknown]
  - Malaise [Unknown]

NARRATIVE: CASE EVENT DATE: 20210421
